FAERS Safety Report 5778821-2 (Version None)
Quarter: 2008Q2

REPORT INFORMATION
  Report Type: 
  Country: None (occurrence: None)
  Receive Date: 20080619
  Receipt Date: 20080617
  Transmission Date: 20081010
  Serious: Yes (Death, Other)
  Sender: FDA-Public Use
  Company Number: PHEH2007US13717

PATIENT
  Sex: Male

DRUGS (5)
  1. EXJADE [Suspect]
     Indication: IRON OVERLOAD
     Dosage: 2000 MG, QD
     Route: 048
     Dates: start: 20070501
  2. EXJADE [Suspect]
     Indication: PACKED RED BLOOD CELL TRANSFUSION
  3. TYLENOL [Concomitant]
     Dosage: 650 MG, UNK
  4. BENADRYL ^PARKE DAVIS^                  /AUT/ [Concomitant]
     Dosage: 25 MG, UNK
     Route: 048
  5. LASIX [Concomitant]
     Dosage: 20 MG, UNK
     Route: 042

REACTIONS (8)
  - AORTIC VALVE REPLACEMENT [None]
  - DISEASE PROGRESSION [None]
  - ENDOCARDITIS BACTERIAL [None]
  - MYELODYSPLASTIC SYNDROME [None]
  - REFRACTORY ANAEMIA [None]
  - RESPIRATORY FAILURE [None]
  - SEPSIS [None]
  - THROMBOCYTOPENIA [None]
